FAERS Safety Report 7305918-8 (Version None)
Quarter: 2011Q1

REPORT INFORMATION
  Report Type: 
  Country: None (occurrence: None)
  Receive Date: 20110222
  Receipt Date: 20110215
  Transmission Date: 20110831
  Serious: Yes (Death)
  Sender: FDA-Public Use
  Company Number: US-PFIZER INC-2010172830

PATIENT
  Sex: Female

DRUGS (2)
  1. AMBRISENTAN [Concomitant]
     Dosage: 5 MG, 1X/DAY
     Route: 048
  2. REVATIO [Suspect]
     Indication: PULMONARY HYPERTENSION
     Dosage: 20 MG, 3X/DAY

REACTIONS (1)
  - SUBDURAL HAEMORRHAGE [None]
